FAERS Safety Report 6849912-X (Version None)
Quarter: 2010Q3

REPORT INFORMATION
  Report Type: 
  Country: None (occurrence: None)
  Receive Date: 20100716
  Receipt Date: 20071007
  Transmission Date: 20110219
  Serious: No
  Sender: FDA-Public Use
  Company Number: US-PFIZER INC-2007085761

PATIENT
  Sex: Female
  Weight: 67.727 kg

DRUGS (3)
  1. CHANTIX [Suspect]
     Indication: SMOKING CESSATION THERAPY
     Dates: end: 20071003
  2. ADVIL LIQUI-GELS [Concomitant]
  3. MOTRIN [Concomitant]

REACTIONS (3)
  - INSOMNIA [None]
  - LOGORRHOEA [None]
  - TENSION [None]
